FAERS Safety Report 23629663 (Version 2)
Quarter: 2024Q2

REPORT INFORMATION
  Report Type: Report from Study
  Country: US (occurrence: US)
  Receive Date: 20240314
  Receipt Date: 20240509
  Transmission Date: 20240717
  Serious: No
  Sender: FDA-Public Use
  Company Number: US-ALXN-A202312217

PATIENT
  Sex: Male

DRUGS (1)
  1. ULTOMIRIS [Suspect]
     Active Substance: RAVULIZUMAB-CWVZ
     Indication: Myasthenia gravis
     Dosage: UNK
     Route: 065

REACTIONS (4)
  - Visual impairment [Unknown]
  - Diplopia [Unknown]
  - Vision blurred [Unknown]
  - Therapeutic response shortened [Unknown]
